FAERS Safety Report 5684727-X (Version None)
Quarter: 2008Q1

REPORT INFORMATION
  Report Type: 
  Country: None (occurrence: None)
  Receive Date: 20080328
  Receipt Date: 20070807
  Transmission Date: 20080703
  Serious: Yes (Death, Other)
  Sender: FDA-Public Use
  Company Number: US-BRISTOL-MYERS SQUIBB COMPANY-13867403

PATIENT
  Age: 69 Year
  Sex: Male

DRUGS (4)
  1. ERBITUX [Suspect]
     Indication: SQUAMOUS CELL CARCINOMA
     Route: 042
     Dates: start: 20070711, end: 20070711
  2. BENADRYL [Concomitant]
  3. DECADRON [Concomitant]
  4. CIMETIDINE [Concomitant]

REACTIONS (4)
  - ANAPHYLACTIC REACTION [None]
  - CARDIAC ARREST [None]
  - INFUSION RELATED REACTION [None]
  - PRURITUS [None]
